FAERS Safety Report 8174810-1 (Version None)
Quarter: 2012Q1

REPORT INFORMATION
  Report Type: 
  Country: None (occurrence: None)
  Receive Date: 20120229
  Receipt Date: 20120219
  Transmission Date: 20120608
  Serious: Yes (Hospitalization, Other)
  Sender: FDA-Public Use
  Company Number: PHHY2012CA014574

PATIENT
  Sex: Male

DRUGS (13)
  1. CIPROFLOXACIN [Suspect]
     Dosage: 400 MG, Q12H
     Route: 042
  2. THIAMINE HCL [Concomitant]
     Dosage: 100 MG, DAILY
     Route: 048
  3. METHOTRIMEPRAZINE [Concomitant]
     Dosage: 10-15 MG, QHS
     Route: 048
  4. ACETAMINOPHEN W/ CODEINE [Concomitant]
     Dosage: 1-2 DF, Q4H
     Route: 048
  5. CLINDAMYCIN [Concomitant]
     Dosage: 600 MG, Q8H
     Route: 042
  6. DALTEPARIN SODIUM [Concomitant]
     Dosage: 5000 U, DAILY
     Route: 058
  7. FOLIC ACID [Concomitant]
     Dosage: 5 MG, DAILY
     Route: 048
  8. MORPHINE [Concomitant]
     Indication: PAIN
     Dosage: 5-10 MG, UNK
     Route: 048
  9. MORPHINE [Concomitant]
     Dosage: 5-10 MG, Q3H
     Route: 058
  10. METHADONE HCL [Interacting]
     Dosage: 25 MG, DAILY
     Route: 048
  11. METHADONE HCL [Interacting]
     Dosage: 50 MG, QD
     Route: 048
  12. MORPHINE [Concomitant]
     Dosage: 2 MG, QH
     Route: 042
  13. AMOXICILLIN AND CLAVULANATE POTASSIUM [Concomitant]
     Route: 048

REACTIONS (5)
  - MIOSIS [None]
  - DEPRESSED LEVEL OF CONSCIOUSNESS [None]
  - SOMNOLENCE [None]
  - RESPIRATORY DEPRESSION [None]
  - DRUG INTERACTION [None]
